FAERS Safety Report 7592045-8 (Version None)
Quarter: 2011Q3

REPORT INFORMATION
  Report Type: 
  Country: None (occurrence: None)
  Receive Date: 20110705
  Receipt Date: 20110705
  Transmission Date: 20111222
  Serious: Yes (Hospitalization)
  Sender: FDA-Public Use
  Company Number: None

PATIENT
  Sex: Female
  Weight: 93.6 kg

DRUGS (3)
  1. DOCETAXEL [Suspect]
     Dosage: 125 MG
     Dates: end: 20110210
  2. CARBOPLATIN [Suspect]
     Dosage: 390 MG
     Dates: end: 20110210
  3. HERCEPTIN [Suspect]
     Dosage: 190 MG
     Dates: end: 20110210

REACTIONS (9)
  - DIARRHOEA [None]
  - NAUSEA [None]
  - THROMBOCYTOPENIA [None]
  - DEHYDRATION [None]
  - ANAEMIA [None]
  - NEUTROPENIA [None]
  - DEEP VEIN THROMBOSIS [None]
  - VOMITING [None]
  - HYPERGLYCAEMIA [None]
